FAERS Safety Report 8481513-2 (Version None)
Quarter: 2012Q3

REPORT INFORMATION
  Report Type: 
  Country: None (occurrence: None)
  Receive Date: 20120702
  Receipt Date: 20120620
  Transmission Date: 20120928
  Serious: Yes (Other)
  Sender: FDA-Public Use
  Company Number: JP-VERTEX PHARMACEUTICALS INC.-AE-2012-004720

PATIENT
  Age: 60 Year
  Sex: Female

DRUGS (16)
  1. PEGINTERFERON ALFA-2B [Concomitant]
     Indication: HEPATITIS C
     Route: 058
     Dates: start: 20111216, end: 20111222
  2. SELBEX [Concomitant]
     Route: 048
     Dates: start: 20111216, end: 20120531
  3. EVISTA [Concomitant]
     Route: 048
     Dates: start: 20111218
  4. REBETOL [Concomitant]
     Route: 048
     Dates: start: 20120127, end: 20120309
  5. LEVOTHYROXINE SODIUM [Concomitant]
     Route: 048
     Dates: start: 20120428
  6. VIVIANT [Concomitant]
     Route: 048
     Dates: start: 20120204, end: 20120531
  7. PEGINTERFERON ALFA-2B [Concomitant]
     Route: 058
     Dates: end: 20120525
  8. REBETOL [Concomitant]
     Indication: HEPATITIS C
     Route: 048
     Dates: start: 20111216, end: 20111229
  9. REBETOL [Concomitant]
     Route: 048
     Dates: start: 20120407, end: 20120427
  10. REBETOL [Concomitant]
     Route: 048
     Dates: start: 20120428, end: 20120521
  11. PEGINTERFERON ALFA-2B [Concomitant]
     Dates: start: 20111223
  12. TELAVIC (TELAPREVIR) [Suspect]
     Indication: HEPATITIS C
     Route: 048
     Dates: start: 20111216, end: 20120309
  13. REBETOL [Concomitant]
     Route: 048
     Dates: start: 20120310, end: 20120406
  14. REBETOL [Concomitant]
     Route: 048
     Dates: start: 20111230, end: 20120126
  15. LEVOTHYROXINE SODIUM [Concomitant]
     Route: 048
     Dates: end: 20120427
  16. XYZAL [Concomitant]
     Route: 048
     Dates: start: 20111216, end: 20120531

REACTIONS (1)
  - NEUTROPHIL COUNT DECREASED [None]
